FAERS Safety Report 6442492-2 (Version None)
Quarter: 2009Q4

REPORT INFORMATION
  Report Type: 
  Country: None (occurrence: None)
  Receive Date: 20091112
  Receipt Date: 20091028
  Transmission Date: 20100525
  Serious: Yes (Other)
  Sender: FDA-Public Use
  Company Number: 310004L09JPN

PATIENT
  Sex: Female

DRUGS (2)
  1. CONAL-F (FOLLITROPIN ALFA FOR INJECTION) (FOLLITROPIN ALFA) [Suspect]
  2. CHORIONIC GONADOTROPIN [Suspect]

REACTIONS (3)
  - ABORTION SPONTANEOUS [None]
  - PATERNAL DRUGS AFFECTING FOETUS [None]
  - PREGNANCY OF PARTNER [None]
